FAERS Safety Report 4435387-7 (Version None)
Quarter: 2004Q3

REPORT INFORMATION
  Report Type: 
  Country: None (occurrence: None)
  Receive Date: 20040826
  Receipt Date: 20040818
  Transmission Date: 20050211
  Serious: Yes (Death, Life-Threatening)
  Sender: FDA-Public Use
  Company Number: 2004AP04314

PATIENT
  Age: 34 Year
  Sex: Female

DRUGS (1)
  1. MARCAINE [Suspect]
     Indication: SPINAL ANAESTHESIA
     Dosage: 10 MG ONCE IT
     Route: 039
     Dates: start: 20030422, end: 20030422

REACTIONS (10)
  - ABDOMINAL PAIN [None]
  - ANAESTHETIC COMPLICATION [None]
  - COMA [None]
  - CONVULSION [None]
  - DIZZINESS [None]
  - MENTAL IMPAIRMENT [None]
  - NAUSEA [None]
  - POST PROCEDURAL COMPLICATION [None]
  - RESPIRATORY ARREST [None]
  - VOMITING [None]
